FAERS Safety Report 4939373-X (Version None)
Quarter: 2006Q1

REPORT INFORMATION
  Report Type: 
  Country: None (occurrence: None)
  Receive Date: 20060306
  Receipt Date: 20060302
  Transmission Date: 20060701
  Serious: Yes (Hospitalization)
  Sender: FDA-Public Use
  Company Number: ST-2006-008879

PATIENT
  Age: 80 Year
  Sex: Female

DRUGS (6)
  1. OLMETEC [Suspect]
     Indication: HYPERTENSION
     Dosage: 20 MG QD PO
     Route: 048
     Dates: start: 20050801, end: 20060218
  2. OMEPRAL [Suspect]
     Indication: REFLUX OESOPHAGITIS
     Dosage: 10 MG QD PO
     Route: 048
     Dates: start: 20050801, end: 20060218
  3. LANDEL [Suspect]
     Indication: HYPERTENSION
     Dosage: 10 MG QD PO
     Route: 048
     Dates: start: 20050801, end: 20060218
  4. HALCION [Suspect]
     Indication: INSOMNIA
     Dosage: 0.25 MG QD PO
     Route: 048
     Dates: start: 20050801, end: 20060218
  5. PRIMPERAN TAB [Suspect]
     Indication: GASTRITIS
     Dosage: 5 MG TID PO
     Route: 048
     Dates: start: 20050801, end: 20060218
  6. ALDACTONE [Concomitant]

REACTIONS (3)
  - BLOOD CREATINE PHOSPHOKINASE INCREASED [None]
  - BLOOD CREATININE INCREASED [None]
  - INFLUENZA [None]
